FAERS Safety Report 7097856-3 (Version None)
Quarter: 2010Q4

REPORT INFORMATION
  Report Type: 
  Country: None (occurrence: None)
  Receive Date: 20101112
  Receipt Date: 20100928
  Transmission Date: 20110411
  Serious: Yes (Hospitalization)
  Sender: FDA-Public Use
  Company Number: US-BAYER-201016345NA

PATIENT
  Age: 30 Year
  Sex: Female
  Weight: 48 kg

DRUGS (13)
  1. YAZ [Suspect]
     Indication: PRODUCT USED FOR UNKNOWN INDICATION
     Route: 048
     Dates: start: 20050301
  2. YASMIN [Suspect]
     Indication: CONTRACEPTION
     Route: 048
     Dates: start: 20050301, end: 20080601
  3. OCELLA [Suspect]
     Indication: CONTRACEPTION
     Route: 048
     Dates: start: 20080701, end: 20090601
  4. NUVARING [Concomitant]
  5. MOTRIN [Concomitant]
     Dates: start: 20070101, end: 20090501
  6. PENTASA [Concomitant]
     Route: 048
  7. AZATHIOPRINE [Concomitant]
     Route: 048
  8. XANAX [Concomitant]
     Route: 048
  9. KLONOPIN [Concomitant]
     Route: 048
  10. ADDERALL 10 [Concomitant]
     Route: 048
  11. PROAIR HFA [Concomitant]
     Route: 055
  12. PROTONIX [Concomitant]
     Route: 048
  13. ASACOL [Concomitant]

REACTIONS (7)
  - ABDOMINAL PAIN UPPER [None]
  - CHILLS [None]
  - CHOLECYSTITIS [None]
  - CHOLELITHIASIS [None]
  - DIARRHOEA [None]
  - NAUSEA [None]
  - VOMITING [None]
